FAERS Safety Report 24806248 (Version 1)
Quarter: 2025Q1

REPORT INFORMATION
  Report Type: Spontaneous
  Country: TR (occurrence: TR)
  Receive Date: 20250103
  Receipt Date: 20250103
  Transmission Date: 20250409
  Serious: Yes (Other)
  Sender: MERCK
  Company Number: TR-009507513-2412TUR010288

PATIENT
  Age: 29 Year
  Sex: Male
  Weight: 70 kg

DRUGS (3)
  1. ROCURONIUM BROMIDE [Suspect]
     Active Substance: ROCURONIUM BROMIDE
  2. ROCURONIUM BROMIDE [Suspect]
     Active Substance: ROCURONIUM BROMIDE
     Dates: start: 202412, end: 202412
  3. BRIDION [Suspect]
     Active Substance: SUGAMMADEX SODIUM

REACTIONS (4)
  - Respiratory arrest [Unknown]
  - Respiratory distress [Unknown]
  - Intentional overdose [Unknown]
  - Physical assault [Unknown]
